FAERS Safety Report 8116831-0 (Version None)
Quarter: 2011Q4

REPORT INFORMATION
  Report Type: 
  Country: None (occurrence: None)
  Receive Date: 20111227
  Receipt Date: 20110411
  Transmission Date: 20120403
  Serious: Yes (Other)
  Sender: FDA-Public Use
  Company Number: PHHY2011US30334

PATIENT
  Sex: Female

DRUGS (2)
  1. FEMARA [Suspect]
     Dosage: 2.5 MG PER DAY
  2. ANTIHYPERTENSIVE DRUGS (NO INGREDIENTS/SUBSTANCES) [Concomitant]

REACTIONS (7)
  - BACK PAIN [None]
  - GENERAL PHYSICAL CONDITION ABNORMAL [None]
  - MYALGIA [None]
  - OSTEOPOROSIS [None]
  - DIZZINESS [None]
  - BONE DENSITY DECREASED [None]
  - ARTHRALGIA [None]
